FAERS Safety Report 23794419 (Version 2)
Quarter: 2024Q2

REPORT INFORMATION
  Report Type: Spontaneous
  Country: US (occurrence: US)
  Receive Date: 20240429
  Receipt Date: 20240507
  Transmission Date: 20240716
  Serious: No
  Sender: FDA-Public Use
  Company Number: US-GSK-US2024050554

PATIENT
  Sex: Female

DRUGS (1)
  1. BENLYSTA [Suspect]
     Active Substance: BELIMUMAB
     Indication: Product used for unknown indication
     Dosage: UNK

REACTIONS (6)
  - Feeling abnormal [Not Recovered/Not Resolved]
  - Condition aggravated [Unknown]
  - Joint swelling [Unknown]
  - Fatigue [Unknown]
  - Cough [Unknown]
  - Product dose omission issue [Unknown]
